FAERS Safety Report 9990781 (Version 2)
Quarter: 2014Q1

REPORT INFORMATION
  Report Type: Report from Study
  Country: US (occurrence: US)
  Receive Date: 20140310
  Receipt Date: 20140310
  Transmission Date: 20141002
  Serious: No
  Sender: FDA-Public Use
  Company Number: US-ABBVIE-13P-163-1132370-00

PATIENT
  Age: 32 Year
  Sex: Male

DRUGS (4)
  1. HUMIRA [Suspect]
     Indication: PSORIASIS
     Dates: start: 20130519, end: 201307
  2. SPIRONOLACTONE [Concomitant]
     Indication: OEDEMA
  3. FUROSEMIDE [Concomitant]
     Indication: OEDEMA
  4. METOPROLOL [Concomitant]
     Indication: HYPERTENSION

REACTIONS (2)
  - Umbilical hernia [Not Recovered/Not Resolved]
  - Abdominal pain [Unknown]
